FAERS Safety Report 4578662-8 (Version None)
Quarter: 2005Q1

REPORT INFORMATION
  Report Type: 
  Country: None (occurrence: None)
  Receive Date: 20050207
  Receipt Date: 20050207
  Transmission Date: 20050727
  Serious: No
  Sender: FDA-Public Use
  Company Number: None

PATIENT
  Age: 8 Year
  Sex: Male
  Weight: 27.2158 kg

DRUGS (2)
  1. ZOLOFT [Suspect]
     Indication: DEPRESSION
     Dosage: 1 PILL 1X DAILY ORAL
     Route: 048
     Dates: start: 20050115, end: 20050126
  2. ZOLOFT [Suspect]
     Indication: DEPRESSION
     Dosage: 1 PILL 1X DAILY ORAL
     Route: 048
     Dates: start: 20050127, end: 20050201

REACTIONS (4)
  - ABNORMAL BEHAVIOUR [None]
  - AGGRESSION [None]
  - ANGER [None]
  - HOSTILITY [None]
